FAERS Safety Report 15847718 (Version 1)
Quarter: 2019Q1

REPORT INFORMATION
  Report Type: Spontaneous
  Country: DE (occurrence: DE)
  Receive Date: 20190121
  Receipt Date: 20190121
  Transmission Date: 20190417
  Serious: Yes (Life-Threatening, Other)
  Sender: FDA-Public Use
  Company Number: DE-ACCORD-100764

PATIENT
  Age: 74 Year
  Sex: Female
  Weight: 71 kg

DRUGS (4)
  1. PANTOPRAZOLE [Interacting]
     Active Substance: PANTOPRAZOLE
     Indication: PRODUCT USED FOR UNKNOWN INDICATION
  2. ACETYLSALICYLIC ACID [Interacting]
     Active Substance: ASPIRIN
     Indication: PRODUCT USED FOR UNKNOWN INDICATION
  3. METHOTREXATE. [Suspect]
     Active Substance: METHOTREXATE
     Indication: PSORIASIS
     Dosage: FOR 6 YEARS
  4. HYDROCHLOROTHIAZIDE. [Interacting]
     Active Substance: HYDROCHLOROTHIAZIDE
     Indication: PRODUCT USED FOR UNKNOWN INDICATION

REACTIONS (8)
  - Drug interaction [Unknown]
  - Sepsis [Unknown]
  - Thrombocytopenia [Unknown]
  - Procalcitonin increased [Unknown]
  - C-reactive protein increased [Unknown]
  - Granulocytopenia [Unknown]
  - Nephropathy toxic [Unknown]
  - Bone marrow failure [Unknown]
